FAERS Safety Report 16426562 (Version 2)
Quarter: 2019Q3

REPORT INFORMATION
  Report Type: Report from Study
  Country: CA (occurrence: CA)
  Receive Date: 20190613
  Receipt Date: 20190719
  Transmission Date: 20191004
  Serious: Yes (Other)
  Sender: FDA-Public Use
  Company Number: CA-JNJFOC-20190332621

PATIENT
  Age: 4 Decade
  Sex: Male
  Weight: 64.1 kg

DRUGS (1)
  1. REMICADE [Suspect]
     Active Substance: INFLIXIMAB
     Indication: CROHN^S DISEASE
     Dosage: STRENGTH = 100 MG
     Route: 042

REACTIONS (3)
  - Crohn^s disease [Recovered/Resolved]
  - Fall [Recovering/Resolving]
  - Wrist fracture [Recovering/Resolving]

NARRATIVE: CASE EVENT DATE: 201906
